FAERS Safety Report 5492147-6 (Version None)
Quarter: 2007Q4

REPORT INFORMATION
  Report Type: 
  Country: None (occurrence: None)
  Receive Date: 20071015
  Receipt Date: 20070628
  Transmission Date: 20080405
  Serious: No
  Sender: FDA-Public Use
  Company Number: 2007SP002399

PATIENT
  Age: 54 Year
  Sex: Female
  Weight: 95.709 kg

DRUGS (5)
  1. LUNESTA [Suspect]
     Indication: INSOMNIA
     Dosage: 2 MG; 1X; ORAL
     Route: 048
     Dates: start: 20070627, end: 20070627
  2. ATIVAN [Concomitant]
  3. LOPRESSOR [Concomitant]
  4. DILTIAZEM HYDROCHLORIDE [Concomitant]
  5. CALCIUM [Concomitant]

REACTIONS (6)
  - DRUG INEFFECTIVE [None]
  - DYSGEUSIA [None]
  - DYSPEPSIA [None]
  - ERUCTATION [None]
  - INITIAL INSOMNIA [None]
  - NAUSEA [None]
